FAERS Safety Report 18427229 (Version 4)
Quarter: 2022Q2

REPORT INFORMATION
  Report Type: Spontaneous
  Country: US (occurrence: US)
  Receive Date: 20201026
  Receipt Date: 20220502
  Transmission Date: 20220720
  Serious: No
  Sender: FDA-Public Use
  Company Number: US-PFIZER INC-2020411793

PATIENT
  Age: 66 Year
  Sex: Male

DRUGS (3)
  1. LYRICA [Suspect]
     Active Substance: PREGABALIN
     Dosage: 2 DF, ONCE A DAY (SUPPOSED TO TAKE 2 A DAY)
  2. LYRICA [Suspect]
     Active Substance: PREGABALIN
     Dosage: 2 DF, TWICE A DAY (HAVE BEEN TAKING 2 TWICE A DAY)
  3. LYRICA [Suspect]
     Active Substance: PREGABALIN
     Dosage: UNK

REACTIONS (5)
  - Drug ineffective [Unknown]
  - Product prescribing error [Unknown]
  - Confusional state [Unknown]
  - Hypertension [Unknown]
  - Fibromyalgia [Unknown]
